FAERS Safety Report 8622022-7 (Version None)
Quarter: 2012Q3

REPORT INFORMATION
  Report Type: 
  Country: None (occurrence: None)
  Receive Date: 20120823
  Receipt Date: 20120823
  Transmission Date: 20120928
  Serious: Yes (Hospitalization)
  Sender: FDA-Public Use
  Company Number: None

PATIENT
  Sex: Male
  Weight: 81.6475 kg

DRUGS (1)
  1. LOTREL [Suspect]
     Indication: HYPERTENSION
     Dosage: 1 CAPSULE BY MOUTH DAILY
     Dates: start: 20040101

REACTIONS (1)
  - LIP SWELLING [None]
